FAERS Safety Report 7393749-2 (Version None)
Quarter: 2011Q2

REPORT INFORMATION
  Report Type: 
  Country: None (occurrence: None)
  Receive Date: 20110405
  Receipt Date: 20110328
  Transmission Date: 20111010
  Serious: Yes (Other)
  Sender: FDA-Public Use
  Company Number: US-ASTELLAS-2011US000840

PATIENT

DRUGS (2)
  1. CORTICOSTEROID NOS [Suspect]
     Indication: PRODUCT USED FOR UNKNOWN INDICATION
     Dosage: UNK
     Route: 065
  2. PROGRAF [Suspect]
     Indication: LIVER TRANSPLANT
     Dosage: 3 MG, UID/QD
     Route: 048
     Dates: start: 20080708

REACTIONS (7)
  - RENAL FAILURE [None]
  - WEIGHT INCREASED [None]
  - ANGIOPATHY [None]
  - WEIGHT DECREASED [None]
  - COMPLICATIONS OF TRANSPLANTED LIVER [None]
  - FLUID RETENTION [None]
  - CARDIAC FAILURE [None]
